FAERS Safety Report 25218748 (Version 3)
Quarter: 2025Q2

REPORT INFORMATION
  Report Type: Report from Study
  Country: GB (occurrence: GB)
  Receive Date: 20250421
  Receipt Date: 20250513
  Transmission Date: 20250717
  Serious: Yes (Other)
  Sender: TAKEDA
  Company Number: GB-TAKEDA-2025TUS036026

PATIENT
  Sex: Female

DRUGS (2)
  1. HUMAN IMMUNOGLOBULIN G [Suspect]
     Active Substance: HUMAN IMMUNOGLOBULIN G
     Indication: Product used for unknown indication
  2. HUMAN IMMUNOGLOBULIN G [Suspect]
     Active Substance: HUMAN IMMUNOGLOBULIN G

REACTIONS (11)
  - Lower respiratory tract infection [Recovered/Resolved]
  - Limb discomfort [Unknown]
  - Drug ineffective [Unknown]
  - Wheezing [Unknown]
  - Feeling hot [Unknown]
  - Infusion site erythema [Unknown]
  - Infusion site swelling [Unknown]
  - Dyspnoea [Unknown]
  - Paraesthesia [Unknown]
  - Fatigue [Unknown]
  - Headache [Recovered/Resolved]
